FAERS Safety Report 18398048 (Version 2)
Quarter: 2021Q1

REPORT INFORMATION
  Report Type: Spontaneous
  Country: CO (occurrence: CO)
  Receive Date: 20201019
  Receipt Date: 20210105
  Transmission Date: 20210419
  Serious: Yes (Disabling)
  Sender: FDA-Public Use
  Company Number: CO-PFIZER INC-2020402253

PATIENT
  Age: 58 Year
  Sex: Female

DRUGS (1)
  1. REAMPLA [Suspect]
     Active Substance: PALBOCICLIB
     Indication: BREAST CANCER FEMALE
     Dosage: 125 MG, CYCLIC (21 DAYS AND 8 DAYS RESTS)
     Route: 048
     Dates: start: 202009

REACTIONS (3)
  - Prescription drug used without a prescription [Unknown]
  - Mobility decreased [Unknown]
  - Stress [Unknown]

NARRATIVE: CASE EVENT DATE: 2020
